FAERS Safety Report 8357249-5 (Version None)
Quarter: 2012Q2

REPORT INFORMATION
  Report Type: 
  Country: None (occurrence: None)
  Receive Date: 20120514
  Receipt Date: 20120502
  Transmission Date: 20120825
  Serious: Yes (Other)
  Sender: FDA-Public Use
  Company Number: PHHY2012BE020617

PATIENT
  Sex: Female

DRUGS (6)
  1. BETA BLOCKING AGENTS [Concomitant]
  2. PROTHIADEN [Concomitant]
     Indication: SLEEP DISORDER
     Dosage: 25 MG
  3. CARVEDILOL [Concomitant]
     Indication: HYPERTENSION
     Dosage: 12.5 MG, BID
  4. RASILEZ HCT [Suspect]
     Indication: HYPERTENSION
     Dosage: 1 DF
     Route: 048
     Dates: start: 20110714, end: 20120308
  5. LEVOTHYROXINE SODIUM [Concomitant]
     Indication: HYPOTHYROIDISM
     Dosage: 50 UG, UNK
     Dates: start: 20090101
  6. ZOLPIDEM [Concomitant]
     Indication: SLEEP DISORDER

REACTIONS (2)
  - LIVER FUNCTION TEST ABNORMAL [None]
  - GAMMA-GLUTAMYLTRANSFERASE INCREASED [None]
